FAERS Safety Report 14233507 (Version 2)
Quarter: 2018Q1

REPORT INFORMATION
  Report Type: Spontaneous
  Country: DE (occurrence: DE)
  Receive Date: 20171128
  Receipt Date: 20180125
  Transmission Date: 20180508
  Serious: Yes (Other)
  Sender: FDA-Public Use
  Company Number: DE-TEVA-825825GER

PATIENT
  Age: 54 Year
  Sex: Male
  Weight: 102 kg

DRUGS (1)
  1. CINQAERO [Suspect]
     Active Substance: RESLIZUMAB
     Indication: ASTHMA
     Dosage: UNKNOWN VIAL VOLUME
     Route: 042
     Dates: start: 20171106, end: 201711

REACTIONS (4)
  - Bronchial obstruction [Recovered/Resolved]
  - Dyspnoea [Recovered/Resolved]
  - Wheezing [Recovered/Resolved]
  - Chest discomfort [Recovered/Resolved]

NARRATIVE: CASE EVENT DATE: 20171106
